FAERS Safety Report 23427965 (Version 2)
Quarter: 2024Q1

REPORT INFORMATION
  Report Type: Spontaneous
  Country: GB (occurrence: GB)
  Receive Date: 20240122
  Receipt Date: 20240205
  Transmission Date: 20240409
  Serious: Yes (Other)
  Sender: FDA-Public Use
  Company Number: None

PATIENT
  Age: 78 Year
  Sex: Female

DRUGS (28)
  1. OCTREOTIDE [Suspect]
     Active Substance: OCTREOTIDE\OCTREOTIDE ACETATE
     Indication: Product used for unknown indication
     Route: 065
  2. BISOPROLOL [Concomitant]
     Active Substance: BISOPROLOL\BISOPROLOL FUMARATE
  3. CALCIUM CARBONATE\CHOLECALCIFEROL [Concomitant]
     Active Substance: CALCIUM CARBONATE\CHOLECALCIFEROL
  4. LINEZOLID [Suspect]
     Active Substance: LINEZOLID
     Indication: Product used for unknown indication
     Route: 065
  5. SIMVASTATIN [Concomitant]
     Active Substance: SIMVASTATIN
  6. LEVOTHYROXINE [Concomitant]
     Active Substance: LEVOTHYROXINE\LEVOTHYROXINE SODIUM
  7. PENICILLIN V [Concomitant]
     Active Substance: PENICILLIN V
  8. LANSOPRAZOLE [Concomitant]
     Active Substance: LANSOPRAZOLE
  9. MIRABEGRON [Concomitant]
     Active Substance: MIRABEGRON
  10. NITROFURANTOIN [Concomitant]
     Active Substance: NITROFURANTOIN
  11. CITALOPRAM [Concomitant]
     Active Substance: CITALOPRAM HYDROBROMIDE
     Dosage: 40MG/ML
     Route: 048
  12. ASPIRIN [Suspect]
     Active Substance: ASPIRIN
     Indication: Product used for unknown indication
     Route: 065
  13. FUROSEMIDE [Concomitant]
     Active Substance: FUROSEMIDE
  14. ACETAMINOPHEN [Concomitant]
     Active Substance: ACETAMINOPHEN
  15. HUMALOG MIX75/25 [Concomitant]
     Active Substance: INSULIN LISPRO
     Route: 058
  16. ENOXAPARIN [Suspect]
     Active Substance: ENOXAPARIN
     Indication: Product used for unknown indication
     Route: 065
  17. NYSTATIN [Concomitant]
     Active Substance: NYSTATIN
  18. ONDANSETRON [Concomitant]
     Active Substance: ONDANSETRON
  19. MEROPENEM [Concomitant]
     Active Substance: MEROPENEM
  20. RAMIPRIL [Concomitant]
     Active Substance: RAMIPRIL
  21. CASPOFUNGIN [Concomitant]
     Active Substance: CASPOFUNGIN
     Route: 042
  22. CHLORHEXIDINE GLUCONATE [Concomitant]
     Active Substance: CHLORHEXIDINE GLUCONATE
  23. ISOSORBIDE MONONITRATE [Concomitant]
     Active Substance: ISOSORBIDE MONONITRATE
  24. NITROGLYCERIN [Concomitant]
     Active Substance: NITROGLYCERIN
  25. PIPERACILLIN SODIUM\TAZOBACTAM SODIUM [Concomitant]
     Active Substance: PIPERACILLIN SODIUM\TAZOBACTAM SODIUM
     Dates: end: 20231022
  26. SODIUM CHLORIDE [Concomitant]
     Active Substance: SODIUM CHLORIDE
     Dosage: NEBULIZER (NEBS)
  27. ACTRAPID [Concomitant]
     Active Substance: INSULIN HUMAN
     Dosage: CONTINUOUS INFUSION
  28. RANOLAZINE [Concomitant]
     Active Substance: RANOLAZINE

REACTIONS (1)
  - Thrombocytopenia [Unknown]
